FAERS Safety Report 6527443-4 (Version None)
Quarter: 2010Q1

REPORT INFORMATION
  Report Type: 
  Country: None (occurrence: None)
  Receive Date: 20100105
  Receipt Date: 20091224
  Transmission Date: 20100710
  Serious: Yes (Hospitalization, Other)
  Sender: FDA-Public Use
  Company Number: US-PFIZER INC-2009308499

PATIENT
  Sex: Female
  Weight: 89.811 kg

DRUGS (3)
  1. XALATAN [Suspect]
     Indication: INTRAOCULAR PRESSURE TEST
     Dosage: 1 GTT, 1X/DAY
     Route: 047
  2. SYNTHROID [Concomitant]
     Indication: THYROID OPERATION
     Dosage: 88 UG, 1X/DAY
  3. METFORMIN HYDROCHLORIDE [Concomitant]
     Indication: BLOOD GLUCOSE
     Dosage: 500 MG, 1X/DAY

REACTIONS (1)
  - CEREBROVASCULAR ACCIDENT [None]
